FAERS Safety Report 23270946 (Version 1)
Quarter: 2023Q4

REPORT INFORMATION
  Report Type: Spontaneous
  Country: TR (occurrence: TR)
  Receive Date: 20231207
  Receipt Date: 20231207
  Transmission Date: 20240110
  Serious: Yes (Other)
  Sender: FDA-Public Use
  Company Number: TR-ABBVIE-5522246

PATIENT

DRUGS (1)
  1. HUMIRA [Suspect]
     Active Substance: ADALIMUMAB
     Indication: Maternal exposure timing unspecified
     Route: 064

REACTIONS (2)
  - Turner^s syndrome [Unknown]
  - Foetal exposure during pregnancy [Unknown]
